FAERS Safety Report 8563893-2 (Version None)
Quarter: 2012Q3

REPORT INFORMATION
  Report Type: 
  Country: None (occurrence: None)
  Receive Date: 20120727
  Receipt Date: 20120727
  Transmission Date: 20120928
  Serious: Yes (Other)
  Sender: FDA-Public Use
  Company Number: None

PATIENT
  Age: 39 Year
  Sex: Male
  Weight: 88.4514 kg

DRUGS (2)
  1. VIIBRYD [Suspect]
     Indication: DEPRESSION
     Dosage: 40MG 1 DAY PO
     Route: 048
     Dates: start: 20120603, end: 20120724
  2. TRAMADOL HCL [Suspect]
     Indication: PAIN
     Dosage: 200 MG 1 DAY/50MG 2 A DAY PO
     Route: 048
     Dates: start: 20101020, end: 20120723

REACTIONS (11)
  - NEUROLEPTIC MALIGNANT SYNDROME [None]
  - DIARRHOEA [None]
  - RESTLESSNESS [None]
  - HALLUCINATION [None]
  - HEADACHE [None]
  - ANGER [None]
  - TREMOR [None]
  - DIZZINESS [None]
  - HYPONATRAEMIA [None]
  - SEROTONIN SYNDROME [None]
  - SUICIDAL IDEATION [None]
